FAERS Safety Report 12995249 (Version 1)
Quarter: 2016Q4

REPORT INFORMATION
  Report Type: Spontaneous
  Country: FR (occurrence: FR)
  Receive Date: 20161202
  Receipt Date: 20161202
  Transmission Date: 20170207
  Serious: Yes (Other)
  Sender: FDA-Public Use
  Company Number: ALCN2016FR007914

PATIENT
  Age: 72 Year
  Sex: Female

DRUGS (5)
  1. TOBRADEX [Suspect]
     Active Substance: DEXAMETHASONE\TOBRAMYCIN
     Indication: CONJUNCTIVITIS
     Dosage: 1 GTT, TID
     Route: 047
     Dates: start: 20150301
  2. PARACETAMOL [Suspect]
     Active Substance: ACETAMINOPHEN
     Indication: OTITIS EXTERNA
     Dosage: 1 G, PRN
     Route: 048
     Dates: start: 20150304, end: 20150311
  3. AMOXICILLINUM ANHYDRICUM [Suspect]
     Active Substance: AMOXICILLIN
     Indication: OTITIS EXTERNA
     Dosage: 2 DF, BID
     Route: 048
     Dates: start: 20150304, end: 20150311
  4. OFLOCET [Suspect]
     Active Substance: OFLOXACIN
     Indication: OTITIS EXTERNA
     Dosage: 1 DF, BID
     Route: 001
     Dates: start: 20150304, end: 20150304
  5. OFLOCET [Suspect]
     Active Substance: OFLOXACIN
     Dosage: 1 DF, QD
     Route: 001
     Dates: start: 20150305, end: 20150306

REACTIONS (1)
  - Diplopia [Recovered/Resolved]

NARRATIVE: CASE EVENT DATE: 20150305
